FAERS Safety Report 22400216 (Version 1)
Quarter: 2023Q2

REPORT INFORMATION
  Report Type: Spontaneous
  Country: US (occurrence: None)
  Receive Date: 20230601
  Receipt Date: 20230601
  Transmission Date: 20230721
  Serious: Yes (Other)
  Sender: FDA-Public Use
  Company Number: None

PATIENT
  Age: 37 Year
  Sex: Female
  Weight: 81.9 kg

DRUGS (1)
  1. SEMAGLUTIDE [Suspect]
     Active Substance: SEMAGLUTIDE
     Indication: Obesity
     Dosage: 10 UNK ONCE A WEEK SUBCUTANEOUS
     Route: 058
     Dates: start: 20230301, end: 20230414

REACTIONS (4)
  - Nephropathy [None]
  - Blood creatine abnormal [None]
  - Glomerular filtration rate decreased [None]
  - Protein urine present [None]

NARRATIVE: CASE EVENT DATE: 20230301
